FAERS Safety Report 5426225-4 (Version None)
Quarter: 2007Q3

REPORT INFORMATION
  Report Type: 
  Country: None (occurrence: None)
  Receive Date: 20070827
  Receipt Date: 20070813
  Transmission Date: 20080115
  Serious: Yes (Hospitalization, Other)
  Sender: FDA-Public Use
  Company Number: US-ROCHE-458671

PATIENT
  Age: 17 Year
  Sex: Male
  Weight: 70.3 kg

DRUGS (10)
  1. ACCUTANE [Suspect]
     Indication: ACNE
     Dosage: STRENGTH AND FORMULATION REPORTED AS: 40 MG CAPSULE.
     Route: 048
     Dates: start: 19901015
  2. ACCUTANE [Suspect]
     Dosage: STRENGTH REPORTED AS: 50 MG.
     Route: 048
     Dates: start: 19901116, end: 19910313
  3. ACCUTANE [Suspect]
     Route: 048
     Dates: start: 19950915, end: 19960207
  4. ENTOCORT EC [Concomitant]
     Dosage: DRUG REPORTED AS ENTOCORT EC. TAKEN DAILY.
     Route: 048
  5. UNSPECIFIED DRUG [Concomitant]
     Dosage: DRUG NAME REPORTED AS VSL PROBIOTIC. TAKEN DAILY.
     Route: 048
  6. CYLERT [Concomitant]
     Indication: DYSLEXIA
     Dates: start: 19920901
  7. EUCERIN [Concomitant]
     Indication: THERAPEUTIC SKIN CARE TOPICAL
     Route: 061
     Dates: start: 19901212
  8. TETRACYCLINE [Concomitant]
     Indication: ACNE CYSTIC
     Dosage: DOSING REGIMEN REPORTED AS: 500 MG BID X 10 DAYS THEN AS NEEDED.
     Route: 048
     Dates: start: 19910516
  9. BENZAC [Concomitant]
     Dosage: DOSING REGIMEN REPORTED AS: IN AM.
     Route: 061
     Dates: start: 19911014
  10. RETIN-A [Concomitant]
     Dosage: DOSING REGIMEN REPORTED AS: 0.06 EVERY NIGHT.
     Dates: start: 19911014

REACTIONS (10)
  - CHEILITIS [None]
  - CLOSTRIDIAL INFECTION [None]
  - COLITIS [None]
  - COLITIS ULCERATIVE [None]
  - DEPRESSION [None]
  - DRY EYE [None]
  - DRY SKIN [None]
  - EPISTAXIS [None]
  - HEADACHE [None]
  - INFLAMMATORY BOWEL DISEASE [None]
